FAERS Safety Report 18840375 (Version 2)
Quarter: 2021Q2

REPORT INFORMATION
  Report Type: Report from Study
  Country: None (occurrence: US)
  Receive Date: 20210203
  Receipt Date: 20210422
  Transmission Date: 20210717
  Serious: Yes (Other)
  Sender: FDA-Public Use
  Company Number: US-ABBVIE-20K-163-3351943-00

PATIENT
  Age: 46 Year
  Sex: Female

DRUGS (9)
  1. HUMIRA [Suspect]
     Active Substance: ADALIMUMAB
     Indication: CROHN^S DISEASE
     Dosage: DAY 1
     Route: 058
     Dates: start: 20200207, end: 20200207
  2. HUMIRA [Suspect]
     Active Substance: ADALIMUMAB
     Dosage: DAY 15
     Route: 058
     Dates: start: 20200221, end: 20200221
  3. HUMIRA [Suspect]
     Active Substance: ADALIMUMAB
     Dosage: DAY 1
     Route: 058
     Dates: start: 20200415, end: 20200415
  4. HUMIRA [Suspect]
     Active Substance: ADALIMUMAB
     Route: 058
     Dates: start: 2020, end: 20200410
  5. HUMIRA [Suspect]
     Active Substance: ADALIMUMAB
     Route: 058
     Dates: start: 20210325
  6. MODERNA COVID?19 VACCINE [Suspect]
     Active Substance: CX-024414
     Indication: COVID-19 IMMUNISATION
     Dosage: MODERNA
     Route: 030
     Dates: start: 20210205, end: 20210205
  7. HUMIRA [Suspect]
     Active Substance: ADALIMUMAB
     Dosage: LOADING DOSE
     Route: 058
     Dates: start: 20200429, end: 20200429
  8. HUMIRA [Suspect]
     Active Substance: ADALIMUMAB
     Indication: CROHN^S DISEASE
     Dosage: DAY 29
     Route: 058
     Dates: start: 20200513, end: 202011
  9. HUMIRA [Suspect]
     Active Substance: ADALIMUMAB
     Route: 058
     Dates: start: 202011, end: 202103

REACTIONS (46)
  - Skin discolouration [Unknown]
  - Ophthalmic migraine [Unknown]
  - Contusion [Unknown]
  - Paraesthesia [Not Recovered/Not Resolved]
  - Pyrexia [Not Recovered/Not Resolved]
  - Paraesthesia [Recovered/Resolved]
  - Crohn^s disease [Not Recovered/Not Resolved]
  - Gastrooesophageal reflux disease [Unknown]
  - Chest pain [Unknown]
  - Rhinorrhoea [Unknown]
  - Skin fissures [Unknown]
  - Hypoaesthesia [Not Recovered/Not Resolved]
  - Injection site irritation [Not Recovered/Not Resolved]
  - Ear infection [Unknown]
  - Headache [Unknown]
  - Drug ineffective [Unknown]
  - Constipation [Not Recovered/Not Resolved]
  - Mouth swelling [Not Recovered/Not Resolved]
  - Sinusitis [Recovered/Resolved]
  - Hypersensitivity [Unknown]
  - Loss of personal independence in daily activities [Not Recovered/Not Resolved]
  - Fear [Unknown]
  - Tinnitus [Unknown]
  - Diarrhoea [Recovering/Resolving]
  - Peripheral swelling [Unknown]
  - Inflammatory marker increased [Unknown]
  - Dysphonia [Unknown]
  - Anxiety [Not Recovered/Not Resolved]
  - Fatigue [Not Recovered/Not Resolved]
  - Chills [Not Recovered/Not Resolved]
  - Nasal congestion [Unknown]
  - Respiratory tract congestion [Unknown]
  - Insomnia [Not Recovered/Not Resolved]
  - Peripheral swelling [Not Recovered/Not Resolved]
  - Abdominal pain [Recovering/Resolving]
  - Paraesthesia oral [Not Recovered/Not Resolved]
  - Migraine [Not Recovered/Not Resolved]
  - Asthma [Recovered/Resolved]
  - Nausea [Not Recovered/Not Resolved]
  - Oral candidiasis [Unknown]
  - Sneezing [Unknown]
  - Depressed mood [Not Recovered/Not Resolved]
  - Eye pain [Not Recovered/Not Resolved]
  - Abdominal pain [Recovered/Resolved]
  - Injection site pain [Unknown]
  - Injection site bruising [Unknown]

NARRATIVE: CASE EVENT DATE: 2020
